FAERS Safety Report 7930201-7 (Version None)
Quarter: 2011Q4

REPORT INFORMATION
  Report Type: 
  Country: None (occurrence: None)
  Receive Date: 20111117
  Receipt Date: 20111101
  Transmission Date: 20120403
  Serious: No
  Sender: FDA-Public Use
  Company Number: THQ2011A07227

PATIENT
  Age: 54 Year
  Sex: Female

DRUGS (4)
  1. ACTOS [Suspect]
     Indication: TYPE 2 DIABETES MELLITUS
     Dosage: 30 MG (1 D) PER ORAL
     Route: 048
     Dates: start: 20090101, end: 20111001
  2. STATIN (NYSTATIN) [Concomitant]
  3. BETA BLOCKING AGENTS [Concomitant]
  4. DIURETICS [Concomitant]

REACTIONS (2)
  - ANAEMIA [None]
  - OEDEMA PERIPHERAL [None]
